FAERS Safety Report 16956338 (Version 2)
Quarter: 2019Q4

REPORT INFORMATION
  Report Type: Spontaneous
  Country: US (occurrence: US)
  Receive Date: 20191024
  Receipt Date: 20191219
  Transmission Date: 20200122
  Serious: Yes (Other)
  Sender: FDA-Public Use
  Company Number: US-PFIZER INC-2019457750

PATIENT
  Age: 51 Year
  Sex: Female
  Weight: 47.17 kg

DRUGS (1)
  1. IBRANCE [Suspect]
     Active Substance: PALBOCICLIB
     Indication: BREAST CANCER
     Dosage: 125 MG, CYCLIC [1 CAPS QD (ONCE DAILY) ON DAYS 1-21 OF A 28 TREATMENT CYCLE]
     Route: 048
     Dates: start: 20190927

REACTIONS (9)
  - Nausea [Unknown]
  - Hot flush [Unknown]
  - Anxiety [Unknown]
  - Asthenia [Unknown]
  - Vaginal haemorrhage [Unknown]
  - Dysuria [Unknown]
  - Hyperhidrosis [Unknown]
  - Headache [Unknown]
  - Insomnia [Unknown]

NARRATIVE: CASE EVENT DATE: 20191018
